FAERS Safety Report 24630278 (Version 1)
Quarter: 2024Q4

REPORT INFORMATION
  Report Type: Spontaneous
  Country: GB (occurrence: GB)
  Receive Date: 20241118
  Receipt Date: 20241118
  Transmission Date: 20250115
  Serious: Yes (Other)
  Sender: PHARMACOSMOS A/S
  Company Number: None

PATIENT
  Sex: Male
  Weight: 86 kg

DRUGS (4)
  1. FERRIC DERISOMALTOSE [Suspect]
     Active Substance: FERRIC DERISOMALTOSE
     Indication: Iron deficiency anaemia
     Dates: start: 20241111, end: 20241111
  2. DOXAZOSIN [Concomitant]
     Active Substance: DOXAZOSIN\DOXAZOSIN MESYLATE
  3. RAMIPRIL [Concomitant]
     Active Substance: RAMIPRIL
  4. POLYETHYLENE GLYCOL 3350\POTASSIUM CHLORIDE\SODIUM BICARBONATE\SODIUM [Concomitant]
     Active Substance: POLYETHYLENE GLYCOL 3350\POTASSIUM CHLORIDE\SODIUM BICARBONATE\SODIUM CHLORIDE

REACTIONS (4)
  - Flushing [Recovered/Resolved]
  - Back pain [Recovered/Resolved]
  - Bradycardia [Recovered/Resolved]
  - Feeling hot [Recovered/Resolved]

NARRATIVE: CASE EVENT DATE: 20241111
